FAERS Safety Report 16532322 (Version 1)
Quarter: 2019Q3

REPORT INFORMATION
  Report Type: Spontaneous
  Country: GB (occurrence: GB)
  Receive Date: 20190704
  Receipt Date: 20190704
  Transmission Date: 20191004
  Serious: Yes (Death, Other)
  Sender: FDA-Public Use
  Company Number: GB-PFIZER INC-2019279648

PATIENT
  Age: 48 Year
  Sex: Male

DRUGS (5)
  1. GABAPENTIN. [Suspect]
     Active Substance: GABAPENTIN
     Indication: PAIN
     Dosage: DOSE INCREASED DAY BEFORE DEATH
     Route: 048
     Dates: end: 20181204
  2. EMTRICITABINE [Concomitant]
     Active Substance: EMTRICITABINE
     Indication: HIV INFECTION
     Dosage: UNK
  3. RITONAVIR. [Concomitant]
     Active Substance: RITONAVIR
     Indication: HIV INFECTION
     Dosage: UNK
  4. OXYCODONE [Suspect]
     Active Substance: OXYCODONE
     Indication: PAIN
     Dosage: 40 MG, UNK
     Route: 055
     Dates: start: 20181203, end: 20181204
  5. DARUNAVIR [Concomitant]
     Active Substance: DARUNAVIR
     Indication: HIV INFECTION
     Dosage: UNK

REACTIONS (2)
  - Cardiac arrest [Fatal]
  - Pulseless electrical activity [Not Recovered/Not Resolved]

NARRATIVE: CASE EVENT DATE: 20181204
